FAERS Safety Report 17465582 (Version 2)
Quarter: 2020Q2

REPORT INFORMATION
  Report Type: Spontaneous
  Country: US (occurrence: US)
  Receive Date: 20200227
  Receipt Date: 20200501
  Transmission Date: 20200713
  Serious: Yes (Hospitalization, Other)
  Sender: FDA-Public Use
  Company Number: US-DRREDDYS-USA/USA/20/0120111

PATIENT
  Age: 51 Year
  Sex: Male

DRUGS (2)
  1. ATORVASTATIN [Suspect]
     Active Substance: ATORVASTATIN
     Indication: PRODUCT USED FOR UNKNOWN INDICATION
  2. ACETYLSALICYLIC ACID [Concomitant]
     Active Substance: ASPIRIN
     Indication: PRODUCT USED FOR UNKNOWN INDICATION

REACTIONS (3)
  - Jaundice [Recovering/Resolving]
  - Hepatitis acute [Recovering/Resolving]
  - Hepatotoxicity [Recovering/Resolving]
